FAERS Safety Report 14911562 (Version 3)
Quarter: 2018Q2

REPORT INFORMATION
  Report Type: Spontaneous
  Country: US (occurrence: US)
  Receive Date: 20180518
  Receipt Date: 20180622
  Transmission Date: 20180711
  Serious: Yes (Other)
  Sender: FDA-Public Use
  Company Number: US-ASTRAZENECA-2018SE65434

PATIENT
  Age: 61 Year
  Sex: Female
  Weight: 72.6 kg

DRUGS (9)
  1. NEXIUM 24HR [Suspect]
     Active Substance: ESOMEPRAZOLE MAGNESIUM
     Indication: GASTROOESOPHAGEAL REFLUX DISEASE
     Dosage: 40 MG, 1X/DAY(TAKES TWO 20MG CAPSULES FOR A TOTAL OF 40MG EVERY MORNING), CLEARMINIS
     Route: 048
     Dates: start: 20180507, end: 201805
  2. NEXIUM 24HR [Suspect]
     Active Substance: ESOMEPRAZOLE MAGNESIUM
     Indication: GASTROOESOPHAGEAL REFLUX DISEASE
     Dosage: CLEARMINIS
     Route: 048
  3. NEXIUM 24HR [Suspect]
     Active Substance: ESOMEPRAZOLE MAGNESIUM
     Indication: GASTROOESOPHAGEAL REFLUX DISEASE
     Dosage: 40 MG, 1X/DAY(TAKES TWO 20MG CAPSULES FOR A TOTAL OF 40MG EVERY MORNING), CLEARMINIS
     Route: 048
     Dates: start: 20180507, end: 201805
  4. NEXIUM 24HR [Suspect]
     Active Substance: ESOMEPRAZOLE MAGNESIUM
     Indication: GASTROOESOPHAGEAL REFLUX DISEASE
     Route: 048
  5. NEXIUM 24HR [Suspect]
     Active Substance: ESOMEPRAZOLE MAGNESIUM
     Indication: GASTROOESOPHAGEAL REFLUX DISEASE
     Dosage: CLEARMINIS
     Route: 048
  6. NEXIUM 24HR [Suspect]
     Active Substance: ESOMEPRAZOLE MAGNESIUM
     Indication: DYSPEPSIA
     Route: 048
  7. NEXIUM 24HR [Suspect]
     Active Substance: ESOMEPRAZOLE MAGNESIUM
     Indication: GASTROOESOPHAGEAL REFLUX DISEASE
     Route: 048
  8. NEXIUM 24HR [Suspect]
     Active Substance: ESOMEPRAZOLE MAGNESIUM
     Indication: DYSPEPSIA
     Dosage: 40 MG, 1X/DAY(TAKES TWO 20MG CAPSULES FOR A TOTAL OF 40MG EVERY MORNING), CLEARMINIS
     Route: 048
     Dates: start: 20180507, end: 201805
  9. NEXIUM 24HR [Suspect]
     Active Substance: ESOMEPRAZOLE MAGNESIUM
     Indication: DYSPEPSIA
     Dosage: CLEARMINIS
     Route: 048

REACTIONS (5)
  - Pain [Unknown]
  - Drug ineffective [Not Recovered/Not Resolved]
  - Wrong drug administered [Unknown]
  - Product use issue [Unknown]
  - Regurgitation [Unknown]

NARRATIVE: CASE EVENT DATE: 201805
